FAERS Safety Report 14269542 (Version 6)
Quarter: 2018Q1

REPORT INFORMATION
  Report Type: Report from Study
  Country: US (occurrence: US)
  Receive Date: 20171211
  Receipt Date: 20180228
  Transmission Date: 20180508
  Serious: Yes (Hospitalization, Other)
  Sender: FDA-Public Use
  Company Number: US-GILEAD-2017-0309428

PATIENT
  Age: 50 Year
  Sex: Female

DRUGS (3)
  1. OXYGEN. [Concomitant]
     Active Substance: OXYGEN
  2. DIGOXIN. [Suspect]
     Active Substance: DIGOXIN
     Indication: PRODUCT USED FOR UNKNOWN INDICATION
     Dosage: UNK
     Route: 065
  3. AMBRISENTAN [Suspect]
     Active Substance: AMBRISENTAN
     Indication: PULMONARY ARTERIAL HYPERTENSION
     Dosage: 10 MG, QD
     Route: 065
     Dates: start: 20120913

REACTIONS (9)
  - Dyspnoea [Not Recovered/Not Resolved]
  - Myocardial infarction [Unknown]
  - Cardiac disorder [Unknown]
  - Gait inability [Not Recovered/Not Resolved]
  - Chest pain [Unknown]
  - Pain [Unknown]
  - Unevaluable event [Unknown]
  - Feeling abnormal [Not Recovered/Not Resolved]
  - Product use issue [Not Recovered/Not Resolved]

NARRATIVE: CASE EVENT DATE: 20180208
